FAERS Safety Report 10955993 (Version 1)
Quarter: 2015Q1

REPORT INFORMATION
  Report Type: Report from Study
  Country: JP (occurrence: JP)
  Receive Date: 20150326
  Receipt Date: 20150326
  Transmission Date: 20150721
  Serious: Yes (Other)
  Sender: FDA-Public Use
  Company Number: JP-ROCHE-1555034

PATIENT

DRUGS (8)
  1. RITUXIMAB [Suspect]
     Active Substance: RITUXIMAB
     Indication: SIALOADENITIS
  2. PREDNISOLONE. [Suspect]
     Active Substance: PREDNISOLONE
     Indication: SIALOADENITIS
     Route: 065
  3. AZATHIOPRINE. [Suspect]
     Active Substance: AZATHIOPRINE
     Indication: SIALOADENITIS
     Route: 048
  4. RITUXIMAB [Suspect]
     Active Substance: RITUXIMAB
     Indication: DACRYOADENITIS ACQUIRED
     Dosage: 500MG/BODY EVERY 6 MONTHS
     Route: 065
  5. CYCLOSPORINE A [Suspect]
     Active Substance: CYCLOSPORINE
     Indication: DACRYOADENITIS ACQUIRED
  6. CYCLOSPORINE A [Suspect]
     Active Substance: CYCLOSPORINE
     Indication: SIALOADENITIS
     Route: 048
  7. PREDNISOLONE. [Suspect]
     Active Substance: PREDNISOLONE
     Indication: DACRYOADENITIS ACQUIRED
  8. AZATHIOPRINE. [Suspect]
     Active Substance: AZATHIOPRINE
     Indication: DACRYOADENITIS ACQUIRED

REACTIONS (14)
  - Umbilical hernia [Unknown]
  - Lymphoma [Unknown]
  - Osteonecrosis [Unknown]
  - Sepsis [Unknown]
  - Sebaceous carcinoma [Unknown]
  - Osteomyelitis bacterial [Unknown]
  - Angina pectoris [Unknown]
  - Pneumonia [Unknown]
  - Acute myeloid leukaemia [Unknown]
  - Scrotal oedema [Unknown]
  - Herpes zoster [Unknown]
  - Mallory-Weiss syndrome [Unknown]
  - Depression [Unknown]
  - Osteoporosis [Unknown]
